FAERS Safety Report 9097551 (Version 2)
Quarter: 2013Q3

REPORT INFORMATION
  Report Type: Spontaneous
  Country: US (occurrence: US)
  Receive Date: 20130212
  Receipt Date: 20130916
  Transmission Date: 20140515
  Serious: Yes (Congenital Anomaly, Other)
  Sender: FDA-Public Use
  Company Number: US-PFIZER INC-2013056785

PATIENT
  Sex: Male

DRUGS (3)
  1. ZOLOFT [Suspect]
     Dosage: UNK
     Route: 064
     Dates: start: 201003, end: 201005
  2. AMOXICILLIN [Concomitant]
     Dosage: UNK
     Route: 064
  3. PRENATAL VITAMINS [Concomitant]
     Dosage: UNK
     Route: 064

REACTIONS (7)
  - Maternal exposure during pregnancy [Unknown]
  - Atrial septal defect [Unknown]
  - Atrial septal defect [Unknown]
  - Congenital anomaly [Unknown]
  - Tracheomalacia [Unknown]
  - Periventricular leukomalacia [Unknown]
  - Adenoidal hypertrophy [Unknown]
